FAERS Safety Report 21476358 (Version 2)
Quarter: 2022Q4

REPORT INFORMATION
  Report Type: Spontaneous
  Country: US (occurrence: US)
  Receive Date: 20221019
  Receipt Date: 20221028
  Transmission Date: 20230113
  Serious: Yes (Hospitalization, Other)
  Sender: FDA-Public Use
  Company Number: US-EXELIXIS-CABO-22056253

PATIENT
  Age: 64 Year
  Sex: Male
  Weight: 99.5 kg

DRUGS (5)
  1. CABOMETYX [Suspect]
     Active Substance: CABOZANTINIB S-MALATE
     Indication: Metastatic renal cell carcinoma
     Dosage: UNK
     Route: 065
     Dates: start: 20220622, end: 20220801
  2. NIVOLUMAB [Suspect]
     Active Substance: NIVOLUMAB
     Indication: Metastatic renal cell carcinoma
     Dosage: 3 MG/KG, Q3WEEKS
     Route: 042
     Dates: start: 20220622, end: 20220712
  3. NIVOLUMAB [Suspect]
     Active Substance: NIVOLUMAB
     Dosage: 3 MG/KG, Q3WEEKS
     Route: 042
  4. IPILIMUMAB [Suspect]
     Active Substance: IPILIMUMAB
     Indication: Metastatic renal cell carcinoma
     Dosage: 1 MG/KG, Q3WEEKS
     Route: 042
     Dates: start: 20220622, end: 20220712
  5. IPILIMUMAB [Suspect]
     Active Substance: IPILIMUMAB
     Dosage: 1 MG/KG, Q3WEEKS
     Route: 042

REACTIONS (10)
  - Bradycardia [Recovered/Resolved]
  - Hypotension [Recovered/Resolved]
  - Hypoglycaemia [Recovering/Resolving]
  - Anaemia [Unknown]
  - Encephalopathy [Not Recovered/Not Resolved]
  - Acute respiratory failure [Recovering/Resolving]
  - Sleep apnoea syndrome [Unknown]
  - Weight decreased [Unknown]
  - Muscular weakness [Unknown]
  - Lung consolidation [Unknown]

NARRATIVE: CASE EVENT DATE: 20220917
